FAERS Safety Report 5934933-1 (Version None)
Quarter: 2008Q4

REPORT INFORMATION
  Report Type: 
  Country: None (occurrence: None)
  Receive Date: 20081027
  Receipt Date: 20061219
  Transmission Date: 20090506
  Serious: Yes (Other)
  Sender: FDA-Public Use
  Company Number: CHNY2006IT02066

PATIENT
  Age: 41 Year
  Sex: Female

DRUGS (1)
  1. NEO-CIBALGIN (NCH) (CAFFEINE CITRATE, A ETYLSALICYLIC ACID, ACETAMINOP [Suspect]
     Indication: HEADACHE
     Dosage: 2 TABLETS ONCE SINGLE, ORAL
     Route: 048
     Dates: start: 20060318, end: 20060318

REACTIONS (4)
  - BLOOD PRESSURE DECREASED [None]
  - DIZZINESS [None]
  - PALLOR [None]
  - TACHYCARDIA [None]
